FAERS Safety Report 5216330-X (Version None)
Quarter: 2007Q1

REPORT INFORMATION
  Report Type: 
  Country: None (occurrence: None)
  Receive Date: 20070123
  Receipt Date: 20070111
  Transmission Date: 20070707
  Serious: Yes (Other)
  Sender: FDA-Public Use
  Company Number: GR-PFIZER INC-2007004436

PATIENT
  Sex: Male

DRUGS (2)
  1. GEODON [Suspect]
  2. ALL OTHER THERAPEUTIC PRODUCTS [Concomitant]

REACTIONS (4)
  - DEMENTIA [None]
  - HALLUCINATION [None]
  - INSOMNIA [None]
  - RESTLESSNESS [None]
